FAERS Safety Report 4539278-2 (Version None)
Quarter: 2004Q4

REPORT INFORMATION
  Report Type: 
  Country: None (occurrence: None)
  Receive Date: 20041222
  Receipt Date: 20041215
  Transmission Date: 20050328
  Serious: Yes (Hospitalization)
  Sender: FDA-Public Use
  Company Number: J081-002-001834

PATIENT
  Age: 75 Year
  Sex: Female

DRUGS (7)
  1. ARICEPT [Suspect]
     Indication: DEMENTIA
     Dosage: 3 MG, 1 IN 1 D, ORAL
     Route: 048
     Dates: start: 20030702, end: 20030711
  2. LEVODOPA/CARBIDOPA LEVODOPA/CARBIDOPA (SINEMET) [Concomitant]
  3. PERGOLIDE MESYLATE [Concomitant]
  4. BROMOCRIPTINE MESYLATE [Concomitant]
  5. TIAPRIDE (TIAPRIDE) [Concomitant]
  6. TRIHEXYPHENIDYL HCL [Concomitant]
  7. AMANTADINE AND PREPARATIONS [Concomitant]

REACTIONS (13)
  - ACTIVITIES OF DAILY LIVING IMPAIRED [None]
  - AKINESIA [None]
  - ANOREXIA [None]
  - CONDITION AGGRAVATED [None]
  - DYSPHAGIA [None]
  - FOOT DEFORMITY [None]
  - IMMOBILE [None]
  - MOVEMENT DISORDER [None]
  - PARKINSONISM [None]
  - POSTURE ABNORMAL [None]
  - PSYCHOTIC DISORDER [None]
  - SPEECH DISORDER [None]
  - UNRESPONSIVE TO VERBAL STIMULI [None]
